FAERS Safety Report 6518710-9 (Version None)
Quarter: 2009Q4

REPORT INFORMATION
  Report Type: 
  Country: None (occurrence: None)
  Receive Date: 20091228
  Receipt Date: 20091215
  Transmission Date: 20100525
  Serious: Yes (Other)
  Sender: FDA-Public Use
  Company Number: PHHY2009BR55438

PATIENT
  Age: 57 Year
  Sex: Female

DRUGS (9)
  1. FLOTAC [Suspect]
     Dosage: 70 MG, UNK
     Route: 048
     Dates: start: 20040101
  2. ALENDRONATE SODIUM [Concomitant]
     Dosage: UNK
  3. FLOSAMAC [Concomitant]
     Dosage: UNK
  4. ACTONEL [Concomitant]
     Dosage: UNK
  5. BONIVA [Concomitant]
     Dosage: UNK
  6. PETASITES HYBRIDUS [Concomitant]
     Dosage: UNK
  7. ZOLOFT [Concomitant]
     Dosage: UNK
  8. LIPITOR [Concomitant]
     Dosage: UNK
  9. FLUVACCIN [Concomitant]
     Dosage: UNK

REACTIONS (2)
  - BONE DENSITY DECREASED [None]
  - HAND FRACTURE [None]
